FAERS Safety Report 19861717 (Version 5)
Quarter: 2021Q4

REPORT INFORMATION
  Report Type: Report from Study
  Country: US (occurrence: US)
  Receive Date: 20210920
  Receipt Date: 20211223
  Transmission Date: 20220303
  Serious: Yes (Hospitalization, Other)
  Sender: FDA-Public Use
  Company Number: US-TAKEDA-2021TUS056909

PATIENT
  Age: 67 Year
  Sex: Female
  Weight: 63.039 kg

DRUGS (12)
  1. TEDUGLUTIDE [Suspect]
     Active Substance: TEDUGLUTIDE
     Indication: Short-bowel syndrome
     Dosage: 1.36 MILLIGRAM, QD
     Route: 058
     Dates: start: 202108, end: 202111
  2. TEDUGLUTIDE [Suspect]
     Active Substance: TEDUGLUTIDE
     Indication: Short-bowel syndrome
     Dosage: 1.36 MILLIGRAM, QD
     Route: 058
     Dates: start: 202108, end: 202111
  3. TEDUGLUTIDE [Suspect]
     Active Substance: TEDUGLUTIDE
     Indication: Short-bowel syndrome
     Dosage: 1.36 MILLIGRAM, QD
     Route: 058
     Dates: start: 202108, end: 202111
  4. TEDUGLUTIDE [Suspect]
     Active Substance: TEDUGLUTIDE
     Indication: Short-bowel syndrome
     Dosage: 1.36 MILLIGRAM, QD
     Route: 058
     Dates: start: 202108, end: 202111
  5. TEDUGLUTIDE [Suspect]
     Active Substance: TEDUGLUTIDE
     Indication: Gastrointestinal stoma output increased
     Dosage: 1.36 MILLIGRAM, QD
     Route: 058
     Dates: start: 20210813
  6. TEDUGLUTIDE [Suspect]
     Active Substance: TEDUGLUTIDE
     Indication: Gastrointestinal stoma output increased
     Dosage: 1.36 MILLIGRAM, QD
     Route: 058
     Dates: start: 20210813
  7. TEDUGLUTIDE [Suspect]
     Active Substance: TEDUGLUTIDE
     Indication: Gastrointestinal stoma output increased
     Dosage: 1.36 MILLIGRAM, QD
     Route: 058
     Dates: start: 20210813
  8. TEDUGLUTIDE [Suspect]
     Active Substance: TEDUGLUTIDE
     Indication: Gastrointestinal stoma output increased
     Dosage: 1.36 MILLIGRAM, QD
     Route: 058
     Dates: start: 20210813
  9. TEDUGLUTIDE [Suspect]
     Active Substance: TEDUGLUTIDE
     Dosage: 15 MILLIGRAM, QD
     Route: 058
     Dates: start: 20210823, end: 20211115
  10. TEDUGLUTIDE [Suspect]
     Active Substance: TEDUGLUTIDE
     Dosage: 15 MILLIGRAM, QD
     Route: 058
     Dates: start: 20210823, end: 20211115
  11. TEDUGLUTIDE [Suspect]
     Active Substance: TEDUGLUTIDE
     Dosage: 15 MILLIGRAM, QD
     Route: 058
     Dates: start: 20210823, end: 20211115
  12. TEDUGLUTIDE [Suspect]
     Active Substance: TEDUGLUTIDE
     Dosage: 15 MILLIGRAM, QD
     Route: 058
     Dates: start: 20210823, end: 20211115

REACTIONS (7)
  - Short-bowel syndrome [Unknown]
  - Condition aggravated [Unknown]
  - Cerebrovascular accident [Recovered/Resolved]
  - Seizure [Unknown]
  - Peripheral swelling [Recovered/Resolved]
  - Skin discolouration [Recovered/Resolved]
  - Weight increased [Unknown]

NARRATIVE: CASE EVENT DATE: 20210801
